FAERS Safety Report 8954834 (Version 2)
Quarter: 2012Q4

REPORT INFORMATION
  Report Type: 
  Country: US (occurrence: US)
  Receive Date: 20121207
  Receipt Date: 20121219
  Transmission Date: 20130627
  Serious: No
  Sender: FDA-Public Use
  Company Number: US-VERTEX PHARMACEUTICALS INC.-2012-025512

PATIENT
  Age: 57 Year
  Sex: Female
  Weight: 68 kg

DRUGS (7)
  1. VX-950 (TELAPREVIR) [Suspect]
     Indication: HEPATITIS C
     Dosage: 750 mg, tid
     Route: 048
  2. PEGASYS [Suspect]
     Indication: HEPATITIS C
     Dosage: 180 MCG/M
  3. RIBAVIRIN [Suspect]
     Indication: HEPATITIS C
     Dosage: 600 mg, UNK
  4. VISTARIL /00058402/ [Concomitant]
     Dosage: 25 mg, UNK
  5. ADVIL                              /00044201/ [Concomitant]
  6. PREPARATION CRE H [Concomitant]
  7. PRISTIQ [Concomitant]
     Dosage: 100 mg, UNK

REACTIONS (19)
  - White blood cell count decreased [Unknown]
  - Blood iron increased [Unknown]
  - Memory impairment [Unknown]
  - Mood altered [Unknown]
  - Influenza like illness [Unknown]
  - Photosensitivity reaction [Unknown]
  - Insomnia [Unknown]
  - Irritability [Unknown]
  - Back pain [Unknown]
  - Pain [Unknown]
  - Injection site urticaria [Recovered/Resolved]
  - Fatigue [Unknown]
  - Rash pruritic [Unknown]
  - Anaemia [Unknown]
  - Haemorrhoids [Unknown]
  - Anal pruritus [Unknown]
  - Nausea [Unknown]
  - Vomiting [Unknown]
  - Dysgeusia [Unknown]
